FAERS Safety Report 10206616 (Version 2)
Quarter: 2015Q1

REPORT INFORMATION
  Report Type: Spontaneous
  Country: US (occurrence: US)
  Receive Date: 20140530
  Receipt Date: 20150210
  Transmission Date: 20150720
  Serious: No
  Sender: FDA-Public Use
  Company Number: US-GLAXOSMITHKLINE-A1067328A

PATIENT

DRUGS (5)
  1. OPSUMIT [Concomitant]
     Active Substance: MACITENTAN
  2. SILDENAFIL. [Concomitant]
     Active Substance: SILDENAFIL
  3. FLOLAN [Suspect]
     Active Substance: EPOPROSTENOL SODIUM
     Indication: PULMONARY ARTERIAL HYPERTENSION
     Dosage: 20 NG/KG/MIN, CONCENTRATION 30,000 NG/ML, PUMP RATE 59 ML/DAY, VIAL STRENGTH 1.5 MG24 NG/KG/MIN[...]
     Route: 042
     Dates: start: 19990310
  4. FLOLAN [Suspect]
     Active Substance: EPOPROSTENOL SODIUM
     Dates: start: 19990310
  5. COUMADIN [Concomitant]
     Active Substance: WARFARIN SODIUM

REACTIONS (2)
  - Flushing [Unknown]
  - Nasopharyngitis [Unknown]
